FAERS Safety Report 15507733 (Version 2)
Quarter: 2020Q1

REPORT INFORMATION
  Report Type: Spontaneous
  Country: US (occurrence: US)
  Receive Date: 20181016
  Receipt Date: 20200224
  Transmission Date: 20200409
  Serious: No
  Sender: FDA-Public Use
  Company Number: US-SA-2018SA285471

PATIENT
  Age: 47 Year
  Sex: Female

DRUGS (9)
  1. VIT D [Concomitant]
     Active Substance: VITAMIN D NOS
  2. ESTRADIOL. [Concomitant]
     Active Substance: ESTRADIOL
  3. VITAMINS NOS [Concomitant]
     Active Substance: VITAMINS
  4. VITAMIN E [Concomitant]
     Active Substance: .ALPHA.-TOCOPHEROL
  5. DUPIXENT [Suspect]
     Active Substance: DUPILUMAB
     Indication: RESPIRATORY DISORDER
     Dosage: 300 MG, QOW
     Route: 058
     Dates: start: 20180228
  6. FISH OIL [Concomitant]
     Active Substance: FISH OIL
  7. TOPIRAMATE. [Concomitant]
     Active Substance: TOPIRAMATE
  8. VITAMIN B1 [Concomitant]
     Active Substance: THIAMINE HYDROCHLORIDE
  9. VITAMIN C [Concomitant]
     Active Substance: ASCORBIC ACID

REACTIONS (1)
  - Condition aggravated [Not Recovered/Not Resolved]
